FAERS Safety Report 15712676 (Version 1)
Quarter: 2018Q4

REPORT INFORMATION
  Report Type: Spontaneous
  Country: US (occurrence: US)
  Receive Date: 20181128
  Receipt Date: 20181128
  Transmission Date: 20190205
  Serious: No
  Sender: FDA-Public Use
  Company Number: None

PATIENT
  Age: 46 Year
  Sex: Female

DRUGS (1)
  1. HUMIRA [Suspect]
     Active Substance: ADALIMUMAB
     Indication: SPINAL OSTEOARTHRITIS
     Dosage: ?          OTHER FREQUENCY:Q10D;?
     Route: 058
     Dates: start: 20180515

REACTIONS (1)
  - Urinary incontinence [None]

NARRATIVE: CASE EVENT DATE: 20181110
